FAERS Safety Report 5419054-9 (Version None)
Quarter: 2007Q3

REPORT INFORMATION
  Report Type: 
  Country: None (occurrence: None)
  Receive Date: 20070820
  Receipt Date: 20070806
  Transmission Date: 20080115
  Serious: Yes (Other)
  Sender: FDA-Public Use
  Company Number: PHHO2007BR13052

PATIENT
  Age: 84 Year
  Sex: Female

DRUGS (2)
  1. EXELON [Suspect]
     Dosage: 6 MG/DAILY
     Route: 048
  2. EXELON [Suspect]
     Dosage: 4.5 MG/DAILY
     Route: 048

REACTIONS (4)
  - CATATONIA [None]
  - DYSSTASIA [None]
  - MALAISE [None]
  - VOMITING [None]
